FAERS Safety Report 5379216-6 (Version None)
Quarter: 2007Q2

REPORT INFORMATION
  Report Type: 
  Country: None (occurrence: None)
  Receive Date: 20070530
  Receipt Date: 20070223
  Transmission Date: 20071010
  Serious: No
  Sender: FDA-Public Use
  Company Number: 2007PV030606

PATIENT
  Sex: Female

DRUGS (2)
  1. BYETTA [Suspect]
     Indication: INSULIN RESISTANT DIABETES
     Dosage: 10 MCG; BID; SC; 5 MCG; BID; SC
     Route: 058
     Dates: start: 20060101, end: 20060101
  2. BYETTA [Suspect]
     Indication: INSULIN RESISTANT DIABETES
     Dosage: 10 MCG; BID; SC; 5 MCG; BID; SC
     Route: 058
     Dates: start: 20060101, end: 20060216

REACTIONS (4)
  - ABDOMINAL DISTENSION [None]
  - FATIGUE [None]
  - FEELING ABNORMAL [None]
  - WEIGHT INCREASED [None]
